FAERS Safety Report 6287968-6 (Version None)
Quarter: 2009Q3

REPORT INFORMATION
  Report Type: 
  Country: None (occurrence: None)
  Receive Date: 20090729
  Receipt Date: 20090721
  Transmission Date: 20100115
  Serious: Yes (Other)
  Sender: FDA-Public Use
  Company Number: CA-ASTRAZENECA-2009UW21022

PATIENT
  Age: 65 Year
  Sex: Male

DRUGS (1)
  1. SYMBICORT [Suspect]
     Indication: ASTHMA
     Route: 055
     Dates: start: 20020101

REACTIONS (6)
  - BLISTER [None]
  - GASTROINTESTINAL DISORDER [None]
  - HAEMORRHAGE [None]
  - LUNG DISORDER [None]
  - VOCAL CORD DISORDER [None]
  - WEIGHT DECREASED [None]
